FAERS Safety Report 4636567-8 (Version None)
Quarter: 2005Q2

REPORT INFORMATION
  Report Type: 
  Country: None (occurrence: None)
  Receive Date: 20050414
  Receipt Date: 20050329
  Transmission Date: 20051028
  Serious: Yes (Hospitalization)
  Sender: FDA-Public Use
  Company Number: 2005-BP-05239MX

PATIENT
  Age: 53 Year
  Sex: Female

DRUGS (2)
  1. MOBICOX 15.0 MG TABLETS (MELOXICAM) (MELOXICAM) [Suspect]
     Indication: NERVE COMPRESSION
     Dosage: 15 MG (15 MG, 1 TA O.D.)
     Route: 048
     Dates: start: 20050107, end: 20050127
  2. MOBICOX 15.0 MG TABLETS (MELOXICAM) (MELOXICAM) [Suspect]
     Indication: NEUROPATHY
     Dosage: 15 MG (15 MG, 1 TA O.D.)
     Route: 048
     Dates: start: 20050107, end: 20050127

REACTIONS (1)
  - DRUG INEFFECTIVE [None]
